FAERS Safety Report 4746548-1 (Version None)
Quarter: 2005Q3

REPORT INFORMATION
  Report Type: 
  Country: None (occurrence: None)
  Receive Date: 20050815
  Receipt Date: 20050802
  Transmission Date: 20060218
  Serious: Yes (Life-Threatening, Hospitalization, Disabling)
  Sender: FDA-Public Use
  Company Number: HQWYE281119JUL05

PATIENT
  Age: 48 Year
  Sex: Female

DRUGS (3)
  1. NORGESTREL AND ETHINYL ESTRADIOL [Suspect]
     Indication: IRON DEFICIENCY ANAEMIA
     Dosage: 1 TABLET 1X PER 1 DAY, ORAL
     Route: 048
     Dates: start: 20050620, end: 20050720
  2. NORGESTREL AND ETHINYL ESTRADIOL [Suspect]
     Indication: MENORRHAGIA
     Dosage: 1 TABLET 1X PER 1 DAY, ORAL
     Route: 048
     Dates: start: 20050620, end: 20050720
  3. NORGESTREL AND ETHINYL ESTRADIOL [Suspect]
     Indication: UTERINE LEIOMYOMA
     Dosage: 1 TABLET 1X PER 1 DAY, ORAL
     Route: 048
     Dates: start: 20050620, end: 20050720

REACTIONS (14)
  - BLOOD PH INCREASED [None]
  - CARDIOMEGALY [None]
  - DEEP VEIN THROMBOSIS [None]
  - DIARRHOEA [None]
  - FEELING ABNORMAL [None]
  - FIBRIN D DIMER INCREASED [None]
  - HYPOXIA [None]
  - OXYGEN SATURATION DECREASED [None]
  - PROTEIN C DECREASED [None]
  - PROTEIN S DECREASED [None]
  - PULMONARY EMBOLISM [None]
  - RESPIRATORY ALKALOSIS [None]
  - TACHYCARDIA [None]
  - VENOUS THROMBOSIS [None]
